FAERS Safety Report 9469999 (Version 1)
Quarter: 2013Q3

REPORT INFORMATION
  Report Type: Spontaneous
  Country: DE (occurrence: DE)
  Receive Date: 20130822
  Receipt Date: 20130822
  Transmission Date: 20140515
  Serious: Yes (Death, Life-Threatening, Other)
  Sender: FDA-Public Use
  Company Number: DE-JNJFOC-20130809480

PATIENT
  Age: 54 Year
  Sex: Male

DRUGS (3)
  1. RISPERDAL [Suspect]
     Indication: PRODUCT USED FOR UNKNOWN INDICATION
     Dosage: AM
     Route: 048
     Dates: start: 20010806, end: 20010815
  2. FLUANXOL DEPOT [Suspect]
     Indication: PRODUCT USED FOR UNKNOWN INDICATION
     Route: 030
     Dates: start: 20010808
  3. BELOC-ZOK [Concomitant]
     Route: 048
     Dates: start: 20010814, end: 20010815

REACTIONS (1)
  - Sudden cardiac death [Fatal]
